FAERS Safety Report 8515327-1 (Version None)
Quarter: 2012Q3

REPORT INFORMATION
  Report Type: 
  Country: None (occurrence: None)
  Receive Date: 20120717
  Receipt Date: 20120702
  Transmission Date: 20120928
  Serious: Yes (Other)
  Sender: FDA-Public Use
  Company Number: RU-MSD-2012SP030964

PATIENT

DRUGS (43)
  1. BLINDED POST TRIAL THERAPY [Suspect]
     Indication: HEPATITIS C
     Dosage: 800 MG, TID
     Route: 048
     Dates: start: 20120327, end: 20120430
  2. BLINDED PRE TRIAL THERAPY [Suspect]
     Dosage: 800 MG, TID
     Route: 048
     Dates: start: 20120327, end: 20120430
  3. PLACEBO [Suspect]
     Dosage: 800 MG, TID
     Route: 048
     Dates: start: 20120327, end: 20120430
  4. RIBAVIRIN [Suspect]
     Dosage: 800 MG, TID
     Route: 048
     Dates: start: 20120327, end: 20120430
  5. PEGINTERFERON ALFA-2B [Suspect]
     Dosage: 800 MG, TID
     Route: 048
     Dates: start: 20120327, end: 20120430
  6. BLINDED BOCEPREVIR [Suspect]
     Dosage: 800 MG, TID
     Route: 058
     Dates: start: 20120514
  7. BLINDED POST TRIAL THERAPY [Suspect]
     Dosage: 800 MG, TID
     Route: 058
     Dates: start: 20120514
  8. BLINDED PRE TRIAL THERAPY [Suspect]
     Dosage: 800 MG, TID
     Route: 048
     Dates: start: 20120327, end: 20120430
  9. PEGINTERFERON ALFA-2B [Suspect]
     Dosage: 800 MG, TID
     Route: 048
     Dates: start: 20120327, end: 20120430
  10. PLACEBO [Suspect]
     Dosage: 800 MG, TID
     Route: 048
     Dates: start: 20120327, end: 20120430
  11. BLINDED PRE TRIAL THERAPY [Suspect]
     Dosage: 800 MG, TID
     Route: 048
     Dates: start: 20120327, end: 20120430
  12. RIBAVIRIN [Suspect]
     Dosage: 800 MG, TID
     Route: 048
     Dates: start: 20120327, end: 20120430
  13. RIBAVIRIN [Suspect]
     Dosage: 800 MG, TID
     Route: 058
     Dates: start: 20120514
  14. PEGINTERFERON ALFA-2B [Suspect]
     Indication: HEPATITIS C
     Dosage: 800 MG, TID
     Route: 048
     Dates: start: 20120327, end: 20120430
  15. PEGINTERFERON ALFA-2B [Suspect]
     Dosage: 800 MG, TID
     Route: 048
     Dates: start: 20120327, end: 20120430
  16. PEG-INTRON [Suspect]
     Dosage: 80 A?G, QW
     Route: 058
     Dates: start: 20120514
  17. RIBAVIRIN [Suspect]
     Dosage: 400 MG, BID
     Route: 048
     Dates: start: 20120514
  18. BLINDED POST TRIAL THERAPY [Suspect]
     Dosage: 800 MG, TID
     Route: 048
     Dates: start: 20120327, end: 20120430
  19. RIBAVIRIN [Suspect]
     Dosage: 800 MG, TID
     Route: 048
     Dates: start: 20120327, end: 20120430
  20. BLINDED PRE TRIAL THERAPY [Suspect]
     Dosage: 800 MG, TID
     Route: 048
     Dates: start: 20120327, end: 20120430
  21. PEG-INTRON [Suspect]
     Dosage: 80 MICROGRAM, UNK
     Route: 058
     Dates: start: 20120327, end: 20120430
  22. PLACEBO [Suspect]
     Indication: HEPATITIS C
     Dosage: 800 MG, TID
     Route: 048
     Dates: start: 20120327, end: 20120430
  23. PLACEBO [Suspect]
     Dosage: 800 MG, TID
     Route: 048
     Dates: start: 20120327, end: 20120430
  24. BLINDED POST TRIAL THERAPY [Suspect]
     Dosage: 800 MG, TID
     Route: 048
     Dates: start: 20120327, end: 20120430
  25. BLINDED PRE TRIAL THERAPY [Suspect]
     Dosage: 800 MG, TID
     Route: 058
     Dates: start: 20120514
  26. PEG-INTRON [Suspect]
     Dosage: 96 MICROGRAM, QW
     Dates: start: 20120101
  27. BLINDED POST TRIAL THERAPY [Suspect]
     Dosage: 800 MG, TID
     Route: 048
     Dates: start: 20120327, end: 20120430
  28. BLINDED POST TRIAL THERAPY [Suspect]
     Dosage: 800 MG, TID
     Route: 048
     Dates: start: 20120327, end: 20120430
  29. PLACEBO [Suspect]
     Dosage: 800 MG, TID
     Route: 058
     Dates: start: 20120514
  30. PEG-INTRON [Suspect]
     Indication: HEPATITIS C
     Dosage: 96 A?G, QW
     Route: 058
     Dates: start: 20120227, end: 20120327
  31. BLINDED PRE TRIAL THERAPY [Suspect]
     Indication: HEPATITIS C
     Dosage: 800 MG, TID
     Route: 048
     Dates: start: 20120327, end: 20120430
  32. PEGINTERFERON ALFA-2B [Suspect]
     Dosage: 800 MG, TID
     Route: 048
     Dates: start: 20120327, end: 20120430
  33. PLACEBO [Suspect]
     Dosage: 800 MG, TID
     Route: 048
     Dates: start: 20120327, end: 20120430
  34. RIBAVIRIN [Suspect]
     Dosage: 800 MG, TID
     Route: 048
     Dates: start: 20120327, end: 20120430
  35. BLINDED BOCEPREVIR [Suspect]
     Dosage: 800 MG, TID
     Route: 048
     Dates: start: 20120327, end: 20120430
  36. PEGINTERFERON ALFA-2B [Suspect]
     Dosage: 800 MG, TID
     Route: 058
     Dates: start: 20120514
  37. RIBAVIRIN [Suspect]
     Indication: HEPATITIS C
     Dosage: 600 MG, BID
     Route: 048
     Dates: start: 20120227, end: 20120419
  38. BLINDED BOCEPREVIR [Suspect]
     Indication: HEPATITIS C
     Dosage: 800 MG, TID
     Route: 048
     Dates: start: 20120327, end: 20120430
  39. RIBAVIRIN [Suspect]
     Indication: HEPATITIS C
     Dosage: 800 MG, TID
     Route: 048
     Dates: start: 20120327, end: 20120430
  40. BLINDED BOCEPREVIR [Suspect]
     Dosage: 800 MG, TID
     Route: 048
     Dates: start: 20120327, end: 20120430
  41. BLINDED BOCEPREVIR [Suspect]
     Dosage: 800 MG, TID
     Route: 048
     Dates: start: 20120327, end: 20120430
  42. BLINDED BOCEPREVIR [Suspect]
     Dosage: 800 MG, TID
     Route: 048
     Dates: start: 20120327, end: 20120430
  43. RIBAVIRIN [Suspect]
     Dosage: 200 MG MORNING - 400 MG EVENING
     Route: 048
     Dates: start: 20120419, end: 20120430

REACTIONS (1)
  - NEUTROPENIA [None]
